FAERS Safety Report 8482714-X (Version None)
Quarter: 2012Q3

REPORT INFORMATION
  Report Type: 
  Country: None (occurrence: None)
  Receive Date: 20120702
  Receipt Date: 20120627
  Transmission Date: 20120928
  Serious: Yes (Hospitalization)
  Sender: FDA-Public Use
  Company Number: US-MERCK-1204USA00646

PATIENT
  Age: 71 Year
  Sex: Female

DRUGS (12)
  1. CALCIUM (UNSPECIFIED) [Concomitant]
     Route: 065
     Dates: start: 19920101
  2. FOSAMAX [Suspect]
     Indication: OSTEOPOROSIS
     Route: 048
     Dates: start: 20040101, end: 20061101
  3. FOSAMAX [Suspect]
     Route: 048
     Dates: start: 20080501
  4. CHONDROITIN SULFATE SODIUM AND GLUCOSAMINE SULFATE [Concomitant]
     Route: 065
     Dates: start: 19920101
  5. ASCORBIC ACID [Concomitant]
     Route: 065
     Dates: start: 19920101
  6. ALENDRONATE SODIUM [Suspect]
     Route: 048
     Dates: start: 20080101, end: 20090901
  7. VITAMIN E [Concomitant]
     Route: 065
     Dates: start: 19920101
  8. BONIVA [Suspect]
     Indication: OSTEOPOROSIS
     Route: 065
     Dates: start: 20070101, end: 20080501
  9. OMEGA-3 MARINE TRIGLYCERIDES [Concomitant]
     Route: 065
     Dates: start: 19920101
  10. MAGNESIUM (UNSPECIFIED) AND ZINC (UNSPECIFIED) [Concomitant]
     Route: 065
     Dates: start: 19920101
  11. VITAMIN D (UNSPECIFIED) [Concomitant]
     Route: 065
     Dates: start: 19920101
  12. FOSAMAX [Suspect]
     Route: 048
     Dates: start: 20081001, end: 20100801

REACTIONS (3)
  - LOW TURNOVER OSTEOPATHY [None]
  - FEMUR FRACTURE [None]
  - SPINAL DISORDER [None]
